FAERS Safety Report 7164770-4 (Version None)
Quarter: 2010Q4

REPORT INFORMATION
  Report Type: 
  Country: None (occurrence: None)
  Receive Date: 20101215
  Receipt Date: 20101208
  Transmission Date: 20110411
  Serious: Yes (Other)
  Sender: FDA-Public Use
  Company Number: US-US-EMD SERONO, INC.-7024963

PATIENT
  Sex: Female

DRUGS (2)
  1. REBIF [Suspect]
     Indication: PRODUCT USED FOR UNKNOWN INDICATION
     Route: 058
     Dates: start: 20100726
  2. ATIVAN [Concomitant]
     Indication: PANIC DISORDER

REACTIONS (4)
  - CENTRAL NERVOUS SYSTEM LESION [None]
  - HEADACHE [None]
  - OPTIC NEURITIS [None]
  - STRESS [None]
